FAERS Safety Report 4513948-4 (Version None)
Quarter: 2004Q4

REPORT INFORMATION
  Report Type: 
  Country: None (occurrence: None)
  Receive Date: 20041130
  Receipt Date: 20041005
  Transmission Date: 20050328
  Serious: No
  Sender: FDA-Public Use
  Company Number: US-GLAXOSMITHKLINE-A0528552A

PATIENT
  Age: 7 Year
  Sex: Male

DRUGS (4)
  1. WELLBUTRIN XL [Suspect]
     Dosage: 150MG PER DAY
     Route: 048
  2. STRATTERA [Concomitant]
  3. RISPERDAL [Concomitant]
  4. HYDROXYZINE [Concomitant]

REACTIONS (2)
  - ARTHRALGIA [None]
  - FEELING HOT [None]
